FAERS Safety Report 19728862 (Version 1)
Quarter: 2021Q3

REPORT INFORMATION
  Report Type: Spontaneous
  Country: DE (occurrence: DE)
  Receive Date: 20210820
  Receipt Date: 20210820
  Transmission Date: 20211014
  Serious: Yes (Other)
  Sender: FDA-Public Use
  Company Number: DE-MYLANLABS-2021M1053027

PATIENT
  Age: 76 Year
  Sex: Male
  Weight: 77 kg

DRUGS (4)
  1. LIXIANA [Concomitant]
     Active Substance: EDOXABAN TOSYLATE
     Dosage: 1 DOSAGE FORM, QD (1 DF, QD)
     Dates: start: 201702
  2. AMIODARONE [Suspect]
     Active Substance: AMIODARONE
     Indication: PRODUCT USED FOR UNKNOWN INDICATION
     Dosage: 100 MG, QD
     Dates: start: 201902
  3. CLOPIDOGREL [Concomitant]
     Active Substance: CLOPIDOGREL BISULFATE
     Dosage: 1 DOSAGE FORM, QD (1 DF, QD (1 PIECE DAILY)
     Dates: start: 201702
  4. TORASEMIDE MYLAN [Suspect]
     Active Substance: TORSEMIDE
     Dosage: 100 MILLIGRAM, QD (1 DF, QD (1 PIECE DAILY)
     Dates: start: 201302

REACTIONS (3)
  - Dyspnoea [Recovering/Resolving]
  - Cardiac failure [Recovering/Resolving]
  - Fluid retention [Recovering/Resolving]

NARRATIVE: CASE EVENT DATE: 201302
